FAERS Safety Report 7314290-9 (Version None)
Quarter: 2011Q1

REPORT INFORMATION
  Report Type: 
  Country: None (occurrence: None)
  Receive Date: 20110225
  Receipt Date: 20100709
  Transmission Date: 20110831
  Serious: No
  Sender: FDA-Public Use
  Company Number: US-MYLANLABS-2010S1012219

PATIENT
  Age: 18 Year
  Sex: Female

DRUGS (3)
  1. YAZ /01502501/ [Suspect]
     Indication: CONTRACEPTION
     Dates: end: 20100629
  2. AMNESTEEM [Suspect]
     Route: 048
     Dates: end: 20100629
  3. AMNESTEEM [Suspect]
     Indication: ACNE
     Route: 048
     Dates: end: 20100629

REACTIONS (1)
  - HYPOAESTHESIA [None]
